FAERS Safety Report 8864962 (Version 1)
Quarter: 2012Q4

REPORT INFORMATION
  Report Type: 
  Country: US (occurrence: US)
  Receive Date: 20121024
  Receipt Date: 20121024
  Transmission Date: 20130627
  Serious: No
  Sender: FDA-Public Use
  Company Number: US-AMGEN-USASP2012000640

PATIENT
  Age: 80 Year
  Sex: Male

DRUGS (19)
  1. ENBREL [Suspect]
     Indication: PRODUCT USED FOR UNKNOWN INDICATION
     Dosage: 50 mg, qwk
     Route: 058
  2. LISINOPRIL [Concomitant]
     Dosage: UNK
  3. DILTIAZEM [Concomitant]
     Dosage: UNK
  4. TIMOLOL [Concomitant]
     Dosage: UNK
     Route: 047
  5. ZINC [Concomitant]
     Dosage: UNK
  6. WARFARIN [Concomitant]
     Dosage: UNK
  7. VITAMIN D [Concomitant]
     Dosage: UNK
  8. MULTIVITAMIN [Concomitant]
     Dosage: UNK
  9. ISOPTOCARPINA [Concomitant]
     Dosage: UNK
     Route: 047
  10. METROGEL [Concomitant]
     Dosage: UNK
  11. KLOR-CON M20 [Concomitant]
     Dosage: UNK
  12. FUROSEMIDE [Concomitant]
     Dosage: UNK
  13. TRIAMCINOLON [Concomitant]
     Dosage: UNK
  14. DESONIDE [Concomitant]
     Dosage: UNK
  15. PROTOPIC [Concomitant]
     Dosage: UNK
  16. CERAVE [Concomitant]
     Dosage: UNK
  17. MULTI MEGA [Concomitant]
     Dosage: UNK
  18. FISH OIL [Concomitant]
     Dosage: UNK
  19. VITAMIN D3 [Concomitant]
     Dosage: UNK

REACTIONS (1)
  - Oedema peripheral [Unknown]
